FAERS Safety Report 5828441-6 (Version None)
Quarter: 2008Q3

REPORT INFORMATION
  Report Type: 
  Country: None (occurrence: None)
  Receive Date: 20080731
  Receipt Date: 20080723
  Transmission Date: 20090109
  Serious: Yes (Hospitalization)
  Sender: FDA-Public Use
  Company Number: US-ALLERGAN-0809037US

PATIENT
  Sex: Female

DRUGS (9)
  1. RESTASIS [Suspect]
     Indication: DRY EYE
     Dates: start: 20080701
  2. LANOXIN ACID [Concomitant]
  3. BENAZEPRIL HYDROCHLORIDE [Concomitant]
  4. PLAVIX [Concomitant]
  5. VERAPAMIL [Concomitant]
  6. TOPROL-XL [Concomitant]
  7. LOTENSIN [Concomitant]
  8. METFORMIN HCL [Concomitant]
  9. OXYCONTIN [Concomitant]

REACTIONS (2)
  - ASTHENIA [None]
  - METAMORPHOPSIA [None]
